FAERS Safety Report 7891156-7 (Version None)
Quarter: 2011Q4

REPORT INFORMATION
  Report Type: 
  Country: None (occurrence: None)
  Receive Date: 20111103
  Receipt Date: 20110729
  Transmission Date: 20120403
  Serious: No
  Sender: FDA-Public Use
  Company Number: US-AMGEN-USASP2011038663

PATIENT
  Age: 52 Year
  Sex: Female
  Weight: 90.703 kg

DRUGS (5)
  1. METHOTREXATE [Concomitant]
     Dosage: 25 MG, UNK
  2. HYDROCODONE BITARTRATE [Concomitant]
     Dosage: UNK
  3. ENBREL [Suspect]
     Indication: PRODUCT USED FOR UNKNOWN INDICATION
     Dosage: 50 MG, QWK
  4. LEUCOVORIN CALCIUM [Concomitant]
     Dosage: 10 MG, UNK
  5. NAPROSYN [Concomitant]
     Dosage: 250 MG, UNK

REACTIONS (2)
  - PAIN [None]
  - DRUG INEFFECTIVE [None]
